FAERS Safety Report 7754522-6 (Version None)
Quarter: 2011Q3

REPORT INFORMATION
  Report Type: 
  Country: None (occurrence: None)
  Receive Date: 20110915
  Receipt Date: 20110908
  Transmission Date: 20111222
  Serious: Yes (Other)
  Sender: FDA-Public Use
  Company Number: US-ABBOTT-11P-163-0853240-00

PATIENT
  Age: 79 Year
  Sex: Female

DRUGS (15)
  1. ZESTRIL [Concomitant]
     Indication: PRODUCT USED FOR UNKNOWN INDICATION
  2. NEURONTIN [Suspect]
     Indication: NEURALGIA
     Route: 048
     Dates: start: 20090101
  3. NORTRIPTYLINE HCL [Suspect]
     Indication: PRODUCT USED FOR UNKNOWN INDICATION
  4. TRILEPTAL [Suspect]
     Indication: PRODUCT USED FOR UNKNOWN INDICATION
  5. CARDURA [Concomitant]
     Indication: PRODUCT USED FOR UNKNOWN INDICATION
  6. VICODIN [Suspect]
     Indication: PRODUCT USED FOR UNKNOWN INDICATION
  7. COUMADIN [Concomitant]
     Indication: PRODUCT USED FOR UNKNOWN INDICATION
  8. LIDODERM [Suspect]
     Indication: PRODUCT USED FOR UNKNOWN INDICATION
  9. HYDROCHLOROTHIAZIDE [Concomitant]
     Indication: PRODUCT USED FOR UNKNOWN INDICATION
  10. URSO 250 [Concomitant]
     Indication: PRODUCT USED FOR UNKNOWN INDICATION
  11. NEURONTIN [Suspect]
     Indication: NEUROPATHY PERIPHERAL
  12. CYMBALTA [Suspect]
     Indication: PRODUCT USED FOR UNKNOWN INDICATION
  13. TOPROL-XL [Concomitant]
     Indication: PRODUCT USED FOR UNKNOWN INDICATION
  14. LYRICA [Suspect]
     Indication: PRODUCT USED FOR UNKNOWN INDICATION
  15. XANAX [Concomitant]
     Indication: PRODUCT USED FOR UNKNOWN INDICATION

REACTIONS (10)
  - HYPOREFLEXIA [None]
  - WALKING AID USER [None]
  - PARAESTHESIA [None]
  - BLOOD PRESSURE SYSTOLIC INCREASED [None]
  - PERIPHERAL SENSORY NEUROPATHY [None]
  - GASTROINTESTINAL DISORDER [None]
  - CONSTIPATION [None]
  - BABINSKI REFLEX TEST [None]
  - FALL [None]
  - MUSCULAR WEAKNESS [None]
